FAERS Safety Report 4974414-5 (Version None)
Quarter: 2006Q2

REPORT INFORMATION
  Report Type: 
  Country: None (occurrence: None)
  Receive Date: 20060410
  Receipt Date: 20060402
  Transmission Date: 20061013
  Serious: Yes (Life-Threatening)
  Sender: FDA-Public Use
  Company Number: HQWYE641705APR06

PATIENT
  Age: 51 Year
  Sex: Female

DRUGS (10)
  1. TIGECYCLINE [Suspect]
     Indication: PNEUMONIA
     Dosage: 100 MG LOADING THEN 50 MG EVERY 8 HOURS
     Route: 042
     Dates: start: 20060317, end: 20060328
  2. HYDROCORTISONE [Concomitant]
  3. SALBUTAMOL (SALBUTAMOL) [Concomitant]
  4. IPRATROPIUM BROMIDE [Concomitant]
  5. RANITIDINE [Concomitant]
  6. MOSAPRAMINE (MOSAPRAMINE) [Concomitant]
  7. HEPARIN CALCIUM [Concomitant]
  8. THEOPHYLLINE [Concomitant]
  9. DOPAMINE HCL [Concomitant]
  10. LEVOTHYROXINE SODIUM [Concomitant]

REACTIONS (2)
  - CEREBRAL INFARCTION [None]
  - THROMBOTIC THROMBOCYTOPENIC PURPURA [None]
